FAERS Safety Report 21664603 (Version 5)
Quarter: 2023Q1

REPORT INFORMATION
  Report Type: Spontaneous
  Country: US (occurrence: US)
  Receive Date: 20221130
  Receipt Date: 20230227
  Transmission Date: 20230418
  Serious: Yes (Other)
  Sender: FDA-Public Use
  Company Number: US-ELI_LILLY_AND_COMPANY-US202211014482

PATIENT
  Age: 62 Year
  Sex: Female

DRUGS (7)
  1. TADALAFIL [Suspect]
     Active Substance: TADALAFIL
     Indication: Product used for unknown indication
     Dosage: UNK UNK, UNKNOWN
     Route: 065
  2. DUPIXENT [Suspect]
     Active Substance: DUPILUMAB
     Indication: Asthma
     Dosage: 300 MG, EVERY OTHER WEEK
     Route: 058
     Dates: start: 20210119
  3. DUPIXENT [Suspect]
     Active Substance: DUPILUMAB
     Dosage: 300 MG, EVERY OTHER WEEK
     Route: 058
     Dates: start: 20220119
  4. SILDENAFIL CITRATE [Suspect]
     Active Substance: SILDENAFIL CITRATE
     Indication: Product used for unknown indication
     Dosage: UNK UNK, UNKNOWN
     Route: 065
  5. TYVASO [Suspect]
     Active Substance: TREPROSTINIL
     Indication: Product used for unknown indication
     Dosage: UNK UNK, UNKNOWN
     Route: 065
  6. PREDNISONE [Concomitant]
     Active Substance: PREDNISONE
     Indication: Product used for unknown indication
  7. ALBUTEROL [Concomitant]
     Active Substance: ALBUTEROL
     Indication: Product used for unknown indication

REACTIONS (23)
  - Asphyxia [Unknown]
  - Dysphonia [Unknown]
  - Panic attack [Unknown]
  - Pollakiuria [Recovering/Resolving]
  - Throat irritation [Recovered/Resolved]
  - Abdominal distension [Recovering/Resolving]
  - Urine output decreased [Recovering/Resolving]
  - Wheezing [Unknown]
  - Asthma [Recovering/Resolving]
  - Throat clearing [Unknown]
  - Throat irritation [Unknown]
  - Pain [Unknown]
  - Paraesthesia [Unknown]
  - Nasopharyngitis [Unknown]
  - Arthralgia [Unknown]
  - Cough [Unknown]
  - Chest pain [Recovering/Resolving]
  - Pain in extremity [Unknown]
  - Chest discomfort [Unknown]
  - Dyspnoea [Recovering/Resolving]
  - Headache [Recovering/Resolving]
  - Gastrooesophageal reflux disease [Unknown]
  - Non-cardiac chest pain [Unknown]

NARRATIVE: CASE EVENT DATE: 20221024
